FAERS Safety Report 4989330-2 (Version None)
Quarter: 2006Q2

REPORT INFORMATION
  Report Type: 
  Country: None (occurrence: None)
  Receive Date: 20060426
  Receipt Date: 20060419
  Transmission Date: 20061013
  Serious: Yes (Hospitalization)
  Sender: FDA-Public Use
  Company Number: 2006BI005806

PATIENT
  Sex: Male

DRUGS (1)
  1. AVONEX [Suspect]
     Indication: MULTIPLE SCLEROSIS
     Dosage: 30  UG; QW; IM
     Route: 030
     Dates: start: 20050919, end: 20051201

REACTIONS (2)
  - HYPOAESTHESIA [None]
  - MOTOR DYSFUNCTION [None]
